FAERS Safety Report 4426321-4 (Version None)
Quarter: 2004Q3

REPORT INFORMATION
  Report Type: 
  Country: None (occurrence: None)
  Receive Date: 20040811
  Receipt Date: 20040727
  Transmission Date: 20050211
  Serious: Yes (Disabling)
  Sender: FDA-Public Use
  Company Number: 2004AP03819

PATIENT
  Age: 54 Year
  Sex: Male

DRUGS (3)
  1. RHINOCORT [Suspect]
     Dosage: 128 UG BID IN
     Route: 055
     Dates: start: 20031204, end: 20040708
  2. VENTOLIN [Concomitant]
  3. FLIXOTIDE ^ALLEN + HANBURYS^ [Concomitant]

REACTIONS (3)
  - COUGH [None]
  - DRUG INEFFECTIVE [None]
  - DYSPNOEA [None]
